FAERS Safety Report 5959706-5 (Version None)
Quarter: 2008Q4

REPORT INFORMATION
  Report Type: 
  Country: None (occurrence: None)
  Receive Date: 20081119
  Receipt Date: 20081119
  Transmission Date: 20090506
  Serious: Yes (Life-Threatening)
  Sender: FDA-Public Use
  Company Number: None

PATIENT
  Age: 51 Year
  Sex: Male
  Weight: 93 kg

DRUGS (9)
  1. GLIMEPIRIDE [Suspect]
     Indication: DIABETES MELLITUS
     Dosage: 2MG PO QD
     Route: 048
     Dates: end: 20080606
  2. ALLOPURINOL [Concomitant]
  3. LISINOPRIL [Concomitant]
  4. SENNA [Concomitant]
  5. MORPHINE [Concomitant]
  6. OXYCONTIN [Concomitant]
  7. SSI [Concomitant]
  8. METOPROLOL [Concomitant]
  9. COLACE [Concomitant]

REACTIONS (5)
  - BLOOD GLUCOSE DECREASED [None]
  - BLOOD GLUCOSE INCREASED [None]
  - CONVULSION [None]
  - INCORRECT DOSE ADMINISTERED [None]
  - MENTAL STATUS CHANGES [None]
